FAERS Safety Report 14423162 (Version 2)
Quarter: 2018Q3

REPORT INFORMATION
  Report Type: Spontaneous
  Country: US (occurrence: US)
  Receive Date: 20180123
  Receipt Date: 20180829
  Transmission Date: 20181010
  Serious: Yes (Other)
  Sender: FDA-Public Use
  Company Number: US-JNJFOC-20180106525

PATIENT
  Sex: Female
  Weight: 90.72 kg

DRUGS (2)
  1. REMICADE [Suspect]
     Active Substance: INFLIXIMAB
     Indication: RHEUMATOID ARTHRITIS
     Dosage: SEP OR OCT?2002
     Route: 042
     Dates: start: 2002
  2. METHOTREXATE. [Concomitant]
     Active Substance: METHOTREXATE
     Dosage: 2.5 MG 8 TABLETS WEEKLY
     Route: 065

REACTIONS (3)
  - Rheumatoid arthritis [Unknown]
  - Hypertension [Unknown]
  - Stress [Unknown]
